FAERS Safety Report 16910247 (Version 2)
Quarter: 2019Q4

REPORT INFORMATION
  Report Type: Report from Study
  Country: RU (occurrence: RU)
  Receive Date: 20191011
  Receipt Date: 20191018
  Transmission Date: 20200122
  Serious: Yes (Death)
  Sender: FDA-Public Use
  Company Number: RU-PFIZER INC-2019418645

PATIENT
  Age: 59 Year
  Sex: Male
  Weight: 61 kg

DRUGS (6)
  1. OMNITUS [BUTAMIRATE CITRATE] [Concomitant]
     Indication: PRODUCTIVE COUGH
     Dosage: 20 MG, 1X/DAY
     Route: 048
     Dates: start: 20170621
  2. ACETYLCYSTEINE. [Concomitant]
     Active Substance: ACETYLCYSTEINE
     Indication: WHEEZING
  3. L-THYROXINE [Concomitant]
     Active Substance: LEVOTHYROXINE
     Indication: HYPOTHYROIDISM
     Dosage: 25 UG, 1X/DAY
     Route: 048
     Dates: start: 20170315
  4. AXITINIB [Suspect]
     Active Substance: AXITINIB
     Indication: RENAL CELL CARCINOMA
     Dosage: 5 MG, 2X/DAY, CONTINUOUS
     Route: 048
     Dates: start: 20161110, end: 20170718
  5. ACETYLCYSTEINE. [Concomitant]
     Active Substance: ACETYLCYSTEINE
     Indication: PRODUCTIVE COUGH
     Dosage: 400 MG, 1X/DAY
     Route: 048
     Dates: start: 20170524
  6. AVELUMAB [Suspect]
     Active Substance: AVELUMAB
     Indication: RENAL CELL CARCINOMA
     Dosage: 660 MG, CYCLIC: EVERY 2 WEEKS
     Route: 042
     Dates: start: 20161210, end: 20170705

REACTIONS (1)
  - Death [Fatal]

NARRATIVE: CASE EVENT DATE: 20170820
